FAERS Safety Report 11297281 (Version 1)
Quarter: 2015Q3

REPORT INFORMATION
  Report Type: Spontaneous
  Country: US (occurrence: US)
  Receive Date: 20150722
  Receipt Date: 20150722
  Transmission Date: 20151125
  Serious: Yes (Life-Threatening, Hospitalization, Other)
  Sender: FDA-Public Use
  Company Number: US-ELI_LILLY_AND_COMPANY-US201008003035

PATIENT
  Sex: Male
  Weight: 120.64 kg

DRUGS (9)
  1. EFFIENT [Suspect]
     Active Substance: PRASUGREL HYDROCHLORIDE
     Dosage: 10 MG, UNKNOWN
     Route: 048
     Dates: start: 20100727, end: 20100805
  2. ATENOLOL. [Concomitant]
     Active Substance: ATENOLOL
  3. COZAAR [Concomitant]
     Active Substance: LOSARTAN POTASSIUM
  4. EFFIENT [Suspect]
     Active Substance: PRASUGREL HYDROCHLORIDE
     Indication: CORONARY ARTERIAL STENT INSERTION
     Dosage: 60 MG, UNK
     Dates: start: 20100726, end: 20100726
  5. LIPITOR [Concomitant]
     Active Substance: ATORVASTATIN CALCIUM
  6. SYNTHROID [Concomitant]
     Active Substance: LEVOTHYROXINE SODIUM
  7. FISH OIL [Concomitant]
     Active Substance: FISH OIL
  8. NIACIN. [Concomitant]
     Active Substance: NIACIN
  9. ASPIRIN. [Concomitant]
     Active Substance: ASPIRIN

REACTIONS (1)
  - Thrombocytopenia [Recovering/Resolving]
